FAERS Safety Report 7125825-3 (Version None)
Quarter: 2010Q4

REPORT INFORMATION
  Report Type: 
  Country: None (occurrence: None)
  Receive Date: 20101129
  Receipt Date: 20101118
  Transmission Date: 20110411
  Serious: Yes (Hospitalization)
  Sender: FDA-Public Use
  Company Number: Z0004644A

PATIENT
  Age: 49 Year
  Sex: Female
  Weight: 111.2 kg

DRUGS (10)
  1. LAPATINIB [Suspect]
     Indication: BREAST CANCER METASTATIC
     Dosage: 1000MG PER DAY
     Route: 048
     Dates: start: 20100324
  2. PACLITAXEL [Suspect]
     Indication: BREAST CANCER METASTATIC
     Dosage: 100MGM2 CYCLIC
     Route: 042
     Dates: start: 20100324
  3. ZOLPIDEM [Concomitant]
     Indication: INSOMNIA
     Dosage: 10MG AT NIGHT
     Route: 048
     Dates: start: 20100616, end: 20100623
  4. ESTAZOLAM [Concomitant]
     Indication: INSOMNIA
     Dosage: 1MG AT NIGHT
     Route: 048
     Dates: start: 20100620
  5. K-DUR [Concomitant]
     Indication: PROPHYLAXIS
     Dosage: 20MG PER DAY
     Route: 048
     Dates: start: 20100616, end: 20100623
  6. NEXIUM [Concomitant]
     Dosage: 40MG PER DAY
     Route: 048
     Dates: start: 20100616, end: 20100623
  7. HEPARIN [Concomitant]
     Indication: THROMBOSIS PROPHYLAXIS
     Dosage: 5000UNIT THREE TIMES PER DAY
     Route: 058
     Dates: start: 20100616, end: 20100623
  8. MORPHINE SULFATE [Concomitant]
     Indication: PAIN
     Dosage: 2MG AS REQUIRED
     Route: 042
     Dates: start: 20100616, end: 20100623
  9. ZOFRAN [Concomitant]
     Indication: NAUSEA
     Dosage: 4MG AS REQUIRED
     Route: 042
     Dates: start: 20100620, end: 20100620
  10. POTASSIUM CHLORIDE [Concomitant]
     Indication: HYPOKALAEMIA
     Dosage: 40MEQ AS REQUIRED
     Route: 042
     Dates: start: 20100622, end: 20100622

REACTIONS (3)
  - BREAST CANCER METASTATIC [None]
  - DYSPNOEA [None]
  - MALIGNANT NEOPLASM PROGRESSION [None]
